FAERS Safety Report 16323545 (Version 1)
Quarter: 2019Q2

REPORT INFORMATION
  Report Type: Report from Study
  Country: US (occurrence: US)
  Receive Date: 20190517
  Receipt Date: 20190517
  Transmission Date: 20190711
  Serious: Yes (Other)
  Sender: FDA-Public Use
  Company Number: US-ROCHE-2315993

PATIENT
  Sex: Male
  Weight: 36.2 kg

DRUGS (6)
  1. CETRIZINE [Concomitant]
     Active Substance: CETIRIZINE HYDROCHLORIDE
     Route: 065
  2. CHOLECALCIFEROL [Concomitant]
     Active Substance: CHOLECALCIFEROL
  3. HYDROCORTISONE. [Concomitant]
     Active Substance: HYDROCORTISONE
     Route: 065
  4. TAMIFLU [Suspect]
     Active Substance: OSELTAMIVIR PHOSPHATE
     Indication: INFLUENZA
     Dosage: 6MG/ML
     Route: 048
  5. LACTOBACILLUS ACIDOPHILUS;LACTOBACILLUS BULGARICUS [Concomitant]
  6. LEVALBUTEROL [LEVOSALBUTAMOL HYDROCHLORIDE] [Concomitant]
     Dosage: 45 MCG/ACTUATION INHALER
     Route: 065

REACTIONS (2)
  - Fibula fracture [Unknown]
  - Pain in extremity [Unknown]
